FAERS Safety Report 19498495 (Version 2)
Quarter: 2022Q2

REPORT INFORMATION
  Report Type: Other
  Country: DE (occurrence: DE)
  Receive Date: 20210706
  Receipt Date: 20220520
  Transmission Date: 20220721
  Serious: Yes (Hospitalization, Other)
  Sender: FDA-Public Use
  Company Number: DE-HORIZON THERAPEUTICS-HZN-2021-003983

PATIENT

DRUGS (12)
  1. RAYOS [Suspect]
     Active Substance: PREDNISONE
     Indication: Product used for unknown indication
     Dosage: 5 MG, QD
     Route: 048
  2. CANDESARTAN CILEXETIL\HYDROCHLOROTHIAZIDE [Suspect]
     Active Substance: CANDESARTAN CILEXETIL\HYDROCHLOROTHIAZIDE
     Indication: Product used for unknown indication
     Dosage: 1 DOSAGE FORM (32|25 MG), QD
     Route: 048
  3. XARELTO [Suspect]
     Active Substance: RIVAROXABAN
     Indication: Product used for unknown indication
     Dosage: 15 MG, QD
     Route: 048
  4. OMEPRAZOLE [Concomitant]
     Active Substance: OMEPRAZOLE
  5. LEVOTHYROXINUM NATRICUM [Concomitant]
  6. ANAMIRTA COCCULUS [Concomitant]
  7. BETAHISTINE [Concomitant]
     Active Substance: BETAHISTINE
  8. CANDESARTAN [Concomitant]
     Active Substance: CANDESARTAN
  9. RAMIPRIL [Concomitant]
     Active Substance: RAMIPRIL
  10. VITAMIN B12 [Concomitant]
     Active Substance: CYANOCOBALAMIN
     Dosage: 1000 UG
  11. MIRTAZAPINE [Concomitant]
     Active Substance: MIRTAZAPINE
     Dosage: 15 MG
  12. CALCIUM VITAMIN D3 ACIS [Concomitant]
     Dosage: 500MG/400I.E.

REACTIONS (3)
  - Asthenia [Unknown]
  - Vertigo positional [Unknown]
  - Syncope [Unknown]
